FAERS Safety Report 6172876-1 (Version None)
Quarter: 2009Q2

REPORT INFORMATION
  Report Type: 
  Country: None (occurrence: None)
  Receive Date: 20090430
  Receipt Date: 20090421
  Transmission Date: 20091009
  Serious: Yes (Hospitalization)
  Sender: FDA-Public Use
  Company Number: GB-ROCHE-629924

PATIENT
  Age: 65 Year
  Sex: Female

DRUGS (4)
  1. CAPECITABINE [Suspect]
     Dosage: ADMINISTERED FOR 21 DAYS FOLLOWED BY 7 DAYS REST
     Route: 048
     Dates: start: 20080318
  2. ERLOTINIB [Suspect]
     Route: 048
     Dates: start: 20080318
  3. BEVACIZUMAB [Suspect]
     Dosage: ON DAYS 1 AND 15
     Route: 042
     Dates: start: 20080318
  4. GEMCITABINE HCL [Suspect]
     Dosage: DAYS 1 AND 15
     Route: 042
     Dates: start: 20080318

REACTIONS (1)
  - EMBOLISM [None]
